FAERS Safety Report 5873692-8 (Version None)
Quarter: 2008Q3

REPORT INFORMATION
  Report Type: 
  Country: None (occurrence: None)
  Receive Date: 20080908
  Receipt Date: 20080829
  Transmission Date: 20090109
  Serious: Yes (Hospitalization)
  Sender: FDA-Public Use
  Company Number: B0535145A

PATIENT
  Age: 72 Year
  Sex: Female
  Weight: 58 kg

DRUGS (15)
  1. TOPOTECAN [Suspect]
     Indication: OVARIAN CANCER
     Dosage: 20.5MG CUMULATIVE DOSE
     Route: 042
     Dates: start: 20080606, end: 20080710
  2. LAPATINIB [Suspect]
     Indication: OVARIAN CANCER
     Dosage: 1250MG PER DAY
     Route: 048
     Dates: start: 20080606, end: 20080716
  3. DURAGESIC-100 [Concomitant]
     Indication: ABDOMINAL PAIN
     Dosage: 50MCG SEE DOSAGE TEXT
     Route: 048
     Dates: start: 20080710
  4. FURADANTIN [Concomitant]
     Indication: CYSTITIS
     Route: 048
     Dates: start: 20080717, end: 20080101
  5. PRIMPERAN INJ [Concomitant]
     Indication: NAUSEA
     Route: 048
     Dates: start: 20080701, end: 20080101
  6. ACUPAN [Concomitant]
     Indication: PAIN
     Route: 042
     Dates: start: 20080717, end: 20080718
  7. METEOSPASMYL [Concomitant]
     Indication: ABDOMINAL PAIN
     Route: 048
     Dates: start: 20080718
  8. VASTAREL [Concomitant]
     Route: 048
  9. LEVOTHYROX [Concomitant]
     Indication: HYPOTHYROIDISM
     Route: 048
  10. ELISOR [Concomitant]
     Route: 048
  11. DETENSIEL [Concomitant]
     Route: 048
  12. TARDYFERON [Concomitant]
     Route: 048
     Dates: start: 20080619
  13. LEXOMIL [Concomitant]
     Indication: ANXIETY
     Route: 048
     Dates: start: 20080717
  14. SMECTA [Concomitant]
     Indication: ABDOMINAL PAIN
     Route: 048
     Dates: start: 20080717, end: 20080717
  15. ACETAMINOPHEN [Concomitant]
     Indication: ABDOMINAL PAIN
     Route: 048
     Dates: start: 20080717, end: 20080718

REACTIONS (1)
  - ANAEMIA [None]
